FAERS Safety Report 8887192 (Version 3)
Quarter: 2013Q1

REPORT INFORMATION
  Report Type: Spontaneous
  Country: US (occurrence: US)
  Receive Date: 20121105
  Receipt Date: 20130318
  Transmission Date: 20140127
  Serious: Yes (Hospitalization)
  Sender: FDA-Public Use
  Company Number: US-ELI_LILLY_AND_COMPANY-US201210009487

PATIENT
  Sex: Female

DRUGS (9)
  1. ADCIRCA [Suspect]
     Indication: PULMONARY HYPERTENSION
     Dosage: 40 MG, QD
     Route: 048
     Dates: start: 20100520
  2. COUMADIN [Concomitant]
  3. VICODIN [Concomitant]
  4. AMBIEN [Concomitant]
  5. REMODULIN [Concomitant]
  6. DIGOXIN [Concomitant]
  7. PRILOSEC [Concomitant]
  8. LASIX                              /00032602/ [Concomitant]
  9. POTASSIUM [Concomitant]

REACTIONS (2)
  - Pelvic cyst [Recovering/Resolving]
  - Endometriosis [Recovered/Resolved]
